FAERS Safety Report 8625650 (Version 2)
Quarter: 2012Q4

REPORT INFORMATION
  Report Type: Report from Study
  Country: JP (occurrence: JP)
  Receive Date: 20120620
  Receipt Date: 20121130
  Transmission Date: 20130627
  Serious: Yes (Hospitalization)
  Sender: FDA-Public Use
  Company Number: JP-ABBOTT-12P-087-0946179-00

PATIENT
  Age: 66 Year
  Sex: Female
  Weight: 44 kg

DRUGS (7)
  1. HUMIRA 40 MG/ 0.8 ML PRE-FILLED SYRINGE [Suspect]
     Indication: CROHN^S DISEASE
     Route: 058
     Dates: start: 20110125, end: 20110125
  2. HUMIRA 40 MG/ 0.8 ML PRE-FILLED SYRINGE [Suspect]
     Dates: start: 20110208, end: 20110208
  3. HUMIRA 40 MG/ 0.8 ML PRE-FILLED SYRINGE [Suspect]
     Dates: start: 20110222
  4. MESALAZINE [Concomitant]
     Indication: CROHN^S DISEASE
     Dosage: 3000 mg daily
     Route: 048
  5. VITAMIN B COMPLEX [Concomitant]
     Indication: CROHN^S DISEASE
     Dosage: 3 Dosage forms daily
     Route: 048
  6. CLOSTRIDIUM BUTYRICUM [Concomitant]
     Indication: CROHN^S DISEASE
     Dosage: 3 Dosage forms daily
     Route: 048
  7. RABEPRAZOLE SODIUM [Concomitant]
     Indication: GASTROINTESTINAL DISORDER
     Dosage: 10 mg daily
     Route: 048

REACTIONS (1)
  - Ileus [Recovering/Resolving]
